FAERS Safety Report 4943041-8 (Version None)
Quarter: 2006Q1

REPORT INFORMATION
  Report Type: 
  Country: None (occurrence: None)
  Receive Date: 20060314
  Receipt Date: 20060310
  Transmission Date: 20060701
  Serious: Yes (Hospitalization)
  Sender: FDA-Public Use
  Company Number: FR-GLAXOSMITHKLINE-B0415449A

PATIENT
  Age: 70 Year
  Sex: Male

DRUGS (2)
  1. FORTUM [Suspect]
     Indication: LUNG INFECTION
     Dosage: 1G THREE TIMES PER DAY
     Route: 042
     Dates: start: 20060216, end: 20060220
  2. TOBRAMYCINE [Concomitant]
     Indication: LUNG INFECTION
     Route: 065
     Dates: start: 20060216, end: 20060217

REACTIONS (5)
  - ANTIBIOTIC LEVEL ABOVE THERAPEUTIC [None]
  - DERMATITIS BULLOUS [None]
  - PRURITUS [None]
  - RASH ERYTHEMATOUS [None]
  - TOXIC SKIN ERUPTION [None]
